FAERS Safety Report 24273207 (Version 5)
Quarter: 2024Q4

REPORT INFORMATION
  Report Type: Report from Study
  Country: US (occurrence: US)
  Receive Date: 20240902
  Receipt Date: 20241029
  Transmission Date: 20250115
  Serious: Yes (Hospitalization, Other)
  Sender: GILEAD
  Company Number: US-GILEAD-2024-0685099

PATIENT
  Sex: Female

DRUGS (2)
  1. AMBRISENTAN [Suspect]
     Active Substance: AMBRISENTAN
     Indication: Pulmonary hypertension
     Dosage: 10 MG, QD
     Route: 065
     Dates: start: 20220328
  2. VELETRI [Concomitant]
     Active Substance: EPOPROSTENOL

REACTIONS (10)
  - Pneumonia [Unknown]
  - Swelling [Unknown]
  - COVID-19 [Unknown]
  - Vascular device infection [Recovered/Resolved]
  - Rash [Unknown]
  - Fall [Unknown]
  - Platelet count decreased [Unknown]
  - Red blood cell count decreased [Unknown]
  - Pain in extremity [Unknown]
  - Staphylococcal infection [Unknown]
